FAERS Safety Report 14205606 (Version 9)
Quarter: 2020Q4

REPORT INFORMATION
  Report Type: Spontaneous
  Country: JP (occurrence: JP)
  Receive Date: 20171120
  Receipt Date: 20201008
  Transmission Date: 20210113
  Serious: Yes (Death, Hospitalization)
  Sender: FDA-Public Use
  Company Number: JP-EISAI MEDICAL RESEARCH-EC-2017-033256

PATIENT
  Sex: Male

DRUGS (12)
  1. LENVIMA [Suspect]
     Active Substance: LENVATINIB
     Route: 048
     Dates: start: 20180724, end: 20180826
  2. LENVIMA [Suspect]
     Active Substance: LENVATINIB
     Route: 048
     Dates: start: 20161004, end: 20161011
  3. LENVIMA [Suspect]
     Active Substance: LENVATINIB
     Indication: FOLLICULAR THYROID CANCER
     Route: 048
     Dates: start: 20160913, end: 20160919
  4. LENVIMA [Suspect]
     Active Substance: LENVATINIB
     Route: 048
     Dates: start: 20161212, end: 20170213
  5. LENVIMA [Suspect]
     Active Substance: LENVATINIB
     Route: 048
     Dates: start: 20170214, end: 20170228
  6. LENVIMA [Suspect]
     Active Substance: LENVATINIB
     Route: 048
     Dates: start: 20180904, end: 20190722
  7. LENVIMA [Suspect]
     Active Substance: LENVATINIB
     Route: 048
     Dates: start: 20160920, end: 20161003
  8. LENVIMA [Suspect]
     Active Substance: LENVATINIB
     Route: 048
     Dates: start: 20170315, end: 20180721
  9. RANMARK [Suspect]
     Active Substance: DENOSUMAB
     Indication: METASTASES TO BONE
     Dosage: DOSE AND FREQUENCY UNKNOWN
     Route: 058
     Dates: start: 20130206, end: 20190826
  10. LOPEMIN [Concomitant]
     Indication: PRODUCT USED FOR UNKNOWN INDICATION
     Dosage: DOSE AND FREQUENCY UNKNOWN
  11. LOXONIN [Concomitant]
     Active Substance: LOXOPROFEN SODIUM
     Indication: PAIN
     Dosage: FREQUENCY UNKNOWN
     Route: 065
  12. LENVIMA [Suspect]
     Active Substance: LENVATINIB
     Route: 048
     Dates: start: 20161018, end: 20161211

REACTIONS (13)
  - Brain abscess [Unknown]
  - Jaw fistula [Unknown]
  - Trismus [Unknown]
  - Decreased appetite [Unknown]
  - Thyroid function test abnormal [Unknown]
  - Arthritis infective [Unknown]
  - Diarrhoea [Recovered/Resolved]
  - Diplegia [Unknown]
  - Malaise [Unknown]
  - Fatigue [Recovered/Resolved]
  - Altered state of consciousness [Unknown]
  - Platelet count decreased [Recovering/Resolving]
  - Osteonecrosis of jaw [Fatal]

NARRATIVE: CASE EVENT DATE: 2016
